FAERS Safety Report 13061682 (Version 1)
Quarter: 2016Q4

REPORT INFORMATION
  Report Type: Spontaneous
  Country: US (occurrence: US)
  Receive Date: 20161226
  Receipt Date: 20161226
  Transmission Date: 20170207
  Serious: No
  Sender: FDA-Public Use
  Company Number: US-NOVEN PHARMACEUTICALS, INC.-US2016002100

PATIENT

DRUGS (4)
  1. MINIVELLE [Suspect]
     Active Substance: ESTRADIOL
     Indication: HORMONE REPLACEMENT THERAPY
     Dosage: 0.1 MG, UNKNOWN
     Route: 062
     Dates: start: 2014
  2. MINIVELLE [Suspect]
     Active Substance: ESTRADIOL
     Indication: AFFECTIVE DISORDER
     Dosage: UNK, UNKNOWN
     Route: 062
  3. MINIVELLE [Suspect]
     Active Substance: ESTRADIOL
     Dosage: 0.0375 MG, 1/WEEK
     Route: 062
  4. PROGESTIN [Concomitant]
     Active Substance: PROGESTERONE

REACTIONS (4)
  - Inappropriate schedule of drug administration [Not Recovered/Not Resolved]
  - Off label use [Unknown]
  - Feeling abnormal [Recovered/Resolved]
  - Ovulation pain [Recovered/Resolved]

NARRATIVE: CASE EVENT DATE: 2014
